FAERS Safety Report 6724884-7 (Version None)
Quarter: 2010Q2

REPORT INFORMATION
  Report Type: 
  Country: None (occurrence: None)
  Receive Date: 20100513
  Receipt Date: 20100513
  Transmission Date: 20101027
  Serious: Yes (Hospitalization)
  Sender: FDA-Public Use
  Company Number: None

PATIENT
  Sex: Female
  Weight: 50.8 kg

DRUGS (3)
  1. MEMANTINE HCL [Suspect]
     Dosage: 435 MG
  2. CARBOPLATIN [Concomitant]
  3. ETOPOSIDE [Concomitant]

REACTIONS (5)
  - EATING DISORDER [None]
  - HYPOKALAEMIA [None]
  - MENTAL STATUS CHANGES [None]
  - NAUSEA [None]
  - URINARY RETENTION [None]
